FAERS Safety Report 6738063-0 (Version None)
Quarter: 2010Q2

REPORT INFORMATION
  Report Type: 
  Country: None (occurrence: None)
  Receive Date: 20100521
  Receipt Date: 20100512
  Transmission Date: 20101027
  Serious: Yes (Death, Other)
  Sender: FDA-Public Use
  Company Number: WAES 0901USA01503

PATIENT
  Age: 67 Year
  Sex: Female

DRUGS (10)
  1. ZOCOR [Suspect]
     Indication: ACUTE CORONARY SYNDROME
     Dosage: 40 MG DAILY PO
     Route: 048
     Dates: start: 20070509, end: 20081016
  2. TAB PLACEBO (UNSPECIFIED) [Suspect]
     Indication: ACUTE CORONARY SYNDROME
     Dosage: PO
     Route: 048
     Dates: start: 20070509, end: 20081016
  3. ALTACE [Concomitant]
  4. ATROVENT [Concomitant]
  5. DETROL [Concomitant]
  6. DIOVAN [Concomitant]
  7. NORVASC [Concomitant]
  8. PLAVIX [Concomitant]
  9. VENTOLIN [Concomitant]
  10. ASPIRIN [Concomitant]

REACTIONS (1)
  - NON-SMALL CELL LUNG CANCER METASTATIC [None]
